FAERS Safety Report 8365152-X (Version None)
Quarter: 2012Q1

REPORT INFORMATION
  Report Type: 
  Country: None (occurrence: None)
  Receive Date: 20120323
  Receipt Date: 20111212
  Transmission Date: 20120608
  Serious: Yes (Hospitalization, Disabling)
  Sender: FDA-Public Use
  Company Number: 163-21880-11112524

PATIENT
  Age: 58 Year
  Sex: Female

DRUGS (18)
  1. GABAPENTIN [Concomitant]
  2. REVLIMID [Suspect]
     Indication: MULTIPLE MYELOMA
     Dosage: 25 MG, 1 IN 1 D, PO, 10 MG, 1 IN 1 D, PO, 5 MG, 1 IN 1 D, PO, 25 MG,5MG, PO,
     Route: 048
     Dates: start: 20101001
  3. REVLIMID [Suspect]
     Indication: MULTIPLE MYELOMA
     Dosage: 25 MG, 1 IN 1 D, PO, 10 MG, 1 IN 1 D, PO, 5 MG, 1 IN 1 D, PO, 25 MG,5MG, PO,
     Route: 048
     Dates: start: 20111001, end: 20111114
  4. REVLIMID [Suspect]
     Indication: MULTIPLE MYELOMA
     Dosage: 25 MG, 1 IN 1 D, PO, 10 MG, 1 IN 1 D, PO, 5 MG, 1 IN 1 D, PO, 25 MG,5MG, PO,
     Route: 048
     Dates: start: 20111101
  5. REVLIMID [Suspect]
     Indication: MULTIPLE MYELOMA
     Dosage: 25 MG, 1 IN 1 D, PO, 10 MG, 1 IN 1 D, PO, 5 MG, 1 IN 1 D, PO, 25 MG,5MG, PO,
     Route: 048
     Dates: start: 20091001
  6. REVLIMID [Suspect]
     Indication: MULTIPLE MYELOMA
     Dosage: 25 MG, 1 IN 1 D, PO, 10 MG, 1 IN 1 D, PO, 5 MG, 1 IN 1 D, PO, 25 MG,5MG, PO,
     Route: 048
     Dates: start: 20101201
  7. ZOMETA [Concomitant]
  8. LEVOXYL (LEVOTHYROXINE SODIUM)(UNKNOWN) [Concomitant]
  9. ACTONEL [Concomitant]
  10. FOLIC ACID(FOLIC ACID)(UNKNOWN) [Concomitant]
  11. CITALOPRAM HYDROBROMIDE [Concomitant]
  12. OMEPRAZOLE [Concomitant]
  13. LORATADINE [Concomitant]
  14. ACYCLOVIR (ACICLOVIR)(UNKNOWN) [Concomitant]
  15. VALTREX (VALACICLOVIR HYDROCHLORIDE)(UNKNOWN) [Concomitant]
  16. DIFLUCAN [Concomitant]
  17. HYDROMORPHONE HCL [Concomitant]
  18. BACTRIM [Concomitant]

REACTIONS (1)
  - HERPES ZOSTER [None]
